FAERS Safety Report 24714175 (Version 1)
Quarter: 2024Q4

REPORT INFORMATION
  Report Type: Spontaneous
  Country: US (occurrence: US)
  Receive Date: 20241209
  Receipt Date: 20241209
  Transmission Date: 20250114
  Serious: No
  Sender: REGENERON
  Company Number: US-REGENERON PHARMACEUTICALS, INC.-2024-148154

PATIENT
  Sex: Female

DRUGS (1)
  1. EYLEA [Suspect]
     Active Substance: AFLIBERCEPT
     Indication: Diabetic retinopathy
     Dosage: 2 MG, TWICE PER WEEK (1 INJECTION IN EACH EYE IN THE SAME WEEK) (TREATED BOTH EYES), FORMULATION: PF

REACTIONS (4)
  - Visual impairment [Unknown]
  - Nasopharyngitis [Unknown]
  - Injection site pain [Unknown]
  - Drug effect less than expected [Unknown]

NARRATIVE: CASE EVENT DATE: 20240101
